FAERS Safety Report 5005347-6 (Version None)
Quarter: 2006Q2

REPORT INFORMATION
  Report Type: 
  Country: None (occurrence: None)
  Receive Date: 20060515
  Receipt Date: 20060502
  Transmission Date: 20061013
  Serious: Yes (Other)
  Sender: FDA-Public Use
  Company Number: 2006053661

PATIENT
  Age: 60 Year
  Sex: Male
  Weight: 92.9874 kg

DRUGS (11)
  1. CELEBREX [Suspect]
     Indication: SHOULDER PAIN
     Dates: start: 20040101
  2. LYRICA [Suspect]
     Indication: NEURALGIA
     Dosage: 150 MG (50 MG, 3 IN 1 D)
     Dates: start: 20060401
  3. GLUCOPHAGE [Concomitant]
  4. AVANDIA [Concomitant]
  5. MICRONASE [Concomitant]
  6. LISINOPRIL [Concomitant]
  7. ASPIRIN [Concomitant]
  8. MULTIVITAMIN [Concomitant]
  9. PLAVIX [Concomitant]
  10. HYDROCHLOROTHIAZIDE [Concomitant]
  11. VYTORIN [Concomitant]

REACTIONS (7)
  - DRUG INEFFECTIVE [None]
  - ILIAC ARTERY OCCLUSION [None]
  - PERIPHERAL ARTERIAL OCCLUSIVE DISEASE [None]
  - PHARMACEUTICAL PRODUCT COMPLAINT [None]
  - POSTOPERATIVE INFECTION [None]
  - SELF-MEDICATION [None]
  - SKIN ATROPHY [None]
